FAERS Safety Report 6594413-X (Version None)
Quarter: 2010Q1

REPORT INFORMATION
  Report Type: 
  Country: None (occurrence: None)
  Receive Date: 20100222
  Receipt Date: 20100215
  Transmission Date: 20100710
  Serious: Yes (Disabling)
  Sender: FDA-Public Use
  Company Number: B0633614A

PATIENT
  Age: 43 Year
  Sex: Female

DRUGS (5)
  1. AMOXICILLIN AND CLAVULANATE POTASSIUM [Suspect]
     Indication: URINARY TRACT INFECTION
     Route: 048
     Dates: start: 20100201, end: 20100201
  2. CLOTRIMAZOLE [Concomitant]
     Route: 067
     Dates: start: 20100201, end: 20100201
  3. BALNEUM BATH PLUS [Concomitant]
     Indication: SKIN DISORDER
  4. CROMOLYN SODIUM [Concomitant]
     Indication: EYE PRURITUS
  5. LEVOTHYROXINE SODIUM [Concomitant]
     Indication: THYROID DISORDER
     Route: 048

REACTIONS (4)
  - ABASIA [None]
  - DIARRHOEA [None]
  - RASH [None]
  - VOMITING [None]
